FAERS Safety Report 7712476-2 (Version None)
Quarter: 2011Q3

REPORT INFORMATION
  Report Type: 
  Country: None (occurrence: None)
  Receive Date: 20110826
  Receipt Date: 20110826
  Transmission Date: 20111222
  Serious: Yes (Hospitalization)
  Sender: FDA-Public Use
  Company Number: None

PATIENT
  Age: 58 Year
  Sex: Female
  Weight: 79.4 kg

DRUGS (14)
  1. ASPIRIN [Concomitant]
     Route: 048
  2. SIMAVASTATIN [Concomitant]
     Route: 048
  3. HUMULIN N [Concomitant]
  4. SENNA [Concomitant]
     Route: 048
  5. LEVETIRACETAM [Suspect]
     Indication: CONVULSION PROPHYLAXIS
     Dosage: 750 MG
     Route: 048
     Dates: start: 20110801, end: 20110823
  6. NEUTRA-PHOS POWDER [Concomitant]
     Route: 048
  7. ENOXAPARIN [Concomitant]
  8. METOPROLOL [Concomitant]
     Route: 048
  9. CALMOSEPTINE OINTMENT [Concomitant]
     Route: 061
  10. NYSTATIN SUSPENSION 500,000 UNITS [Concomitant]
     Route: 048
  11. NICOTINE [Concomitant]
     Route: 023
  12. GABAPENTIN [Concomitant]
  13. MICONAZOLE 2% ANTIFUNGAL OINTMENT [Concomitant]
     Route: 061
  14. LEVETIRACETAM [Concomitant]
     Route: 048

REACTIONS (1)
  - ERYTHEMA MULTIFORME [None]
